FAERS Safety Report 23611308 (Version 1)
Quarter: 2024Q1

REPORT INFORMATION
  Report Type: Spontaneous
  Country: CN (occurrence: None)
  Receive Date: 20240308
  Receipt Date: 20240308
  Transmission Date: 20240409
  Serious: Yes (Hospitalization)
  Sender: FDA-Public Use
  Company Number: 2024A053769

PATIENT
  Age: 66 Year
  Sex: Female
  Weight: 46 kg

DRUGS (2)
  1. OSIMERTINIB MESYLATE [Suspect]
     Active Substance: OSIMERTINIB MESYLATE
     Indication: Lung carcinoma cell type unspecified stage 0
     Route: 048
     Dates: start: 20231008, end: 20240116
  2. DENOSUMAB [Concomitant]
     Active Substance: DENOSUMAB
     Indication: Bone neoplasm
     Route: 058
     Dates: start: 20231008, end: 20240116

REACTIONS (4)
  - Skin exfoliation [Recovering/Resolving]
  - Skin ulcer [Recovering/Resolving]
  - Dermatitis [Unknown]
  - Rash [Recovering/Resolving]

NARRATIVE: CASE EVENT DATE: 20240115
